FAERS Safety Report 7909175-0 (Version None)
Quarter: 2011Q4

REPORT INFORMATION
  Report Type: 
  Country: None (occurrence: None)
  Receive Date: 20111111
  Receipt Date: 20110518
  Transmission Date: 20120403
  Serious: No
  Sender: FDA-Public Use
  Company Number: US-GLAXOSMITHKLINE-A0928051A

PATIENT
  Sex: Male

DRUGS (4)
  1. ACE INHIBITOR [Concomitant]
  2. ANGIOTENSIN II [Concomitant]
  3. OTHER MEDICATIONS [Concomitant]
     Indication: BLOOD PRESSURE
  4. CARVEDILOL [Suspect]
     Indication: HYPERTENSION
     Route: 065

REACTIONS (1)
  - HYPOTENSION [None]
